FAERS Safety Report 17162355 (Version 1)
Quarter: 2019Q4

REPORT INFORMATION
  Report Type: Spontaneous
  Country: GB (occurrence: GB)
  Receive Date: 20191217
  Receipt Date: 20191217
  Transmission Date: 20200122
  Serious: Yes (Hospitalization, Congenital Anomaly, Other)
  Sender: FDA-Public Use
  Company Number: GB-TEVA-217782ISR

PATIENT
  Age: 1 Hour
  Sex: Male

DRUGS (3)
  1. TRIFLUOPERAZINE [Suspect]
     Active Substance: TRIFLUOPERAZINE HYDROCHLORIDE
     Indication: EXPOSURE DURING PREGNANCY
     Route: 064
  2. ABILIFY [Suspect]
     Active Substance: ARIPIPRAZOLE
     Indication: EXPOSURE DURING PREGNANCY
     Dosage: 15 MILLIGRAM DAILY;
     Route: 064
  3. LACTULOSE. [Suspect]
     Active Substance: LACTULOSE
     Indication: EXPOSURE DURING PREGNANCY
     Dosage: 30 ML DAILY;
     Route: 064

REACTIONS (3)
  - Foetal exposure during pregnancy [Unknown]
  - Neonatal disorder [Not Recovered/Not Resolved]
  - Tracheo-oesophageal fistula [Not Recovered/Not Resolved]

NARRATIVE: CASE EVENT DATE: 20080813
